FAERS Safety Report 12162360 (Version 1)
Quarter: 2016Q1

REPORT INFORMATION
  Report Type: Spontaneous
  Country: US (occurrence: US)
  Receive Date: 20160309
  Receipt Date: 20160309
  Transmission Date: 20160526
  Serious: Yes (Hospitalization)
  Sender: FDA-Public Use
  Company Number: PHHY2014US175372

PATIENT
  Age: 2 Year
  Sex: Female

DRUGS (1)
  1. ONDANSETRON [Suspect]
     Active Substance: ONDANSETRON
     Indication: PRODUCT USED FOR UNKNOWN INDICATION
     Dosage: 58 DF, (36 MG/KG) 8 MG
     Route: 048

REACTIONS (12)
  - Somnolence [Unknown]
  - Overdose [Recovered/Resolved]
  - Gait disturbance [Unknown]
  - Depressed level of consciousness [Unknown]
  - Nystagmus [Unknown]
  - Toxicity to various agents [Unknown]
  - Respiratory failure [Recovered/Resolved]
  - Vomiting [Unknown]
  - Myoclonus [Recovered/Resolved]
  - Electrocardiogram QT prolonged [Recovered/Resolved]
  - Tremor [Unknown]
  - Sinus tachycardia [Unknown]
